FAERS Safety Report 18584415 (Version 1)
Quarter: 2020Q4

REPORT INFORMATION
  Report Type: Report from Study
  Country: US (occurrence: US)
  Receive Date: 20201207
  Receipt Date: 20201207
  Transmission Date: 20210114
  Serious: Yes (Other)
  Sender: FDA-Public Use
  Company Number: US-ASTELLAS-2020US042743

PATIENT
  Sex: Male

DRUGS (1)
  1. ENZALUTAMIDE [Suspect]
     Active Substance: ENZALUTAMIDE
     Indication: HORMONE-REFRACTORY PROSTATE CANCER
     Route: 048

REACTIONS (7)
  - Memory impairment [Unknown]
  - Vision blurred [Unknown]
  - Feeling abnormal [Unknown]
  - Headache [Unknown]
  - Tremor [Unknown]
  - Depressed level of consciousness [Unknown]
  - Confusional state [Unknown]
